FAERS Safety Report 24637973 (Version 1)
Quarter: 2024Q4

REPORT INFORMATION
  Report Type: Spontaneous
  Country: JP (occurrence: JP)
  Receive Date: 20241119
  Receipt Date: 20241119
  Transmission Date: 20250114
  Serious: Yes (Other)
  Sender: PFIZER
  Company Number: JP-PFIZER INC-PV202400140328

PATIENT
  Age: 29 Year
  Sex: Female

DRUGS (1)
  1. VIBRAMYCIN [Suspect]
     Active Substance: DOXYCYCLINE
     Indication: Endometritis
     Dosage: 100 MG, 2X/DAY
     Route: 048
     Dates: start: 20241004, end: 20241018

REACTIONS (2)
  - Maternal exposure during pregnancy [Unknown]
  - Foetal death [Unknown]

NARRATIVE: CASE EVENT DATE: 20241004
